FAERS Safety Report 7992969-3 (Version None)
Quarter: 2011Q4

REPORT INFORMATION
  Report Type: 
  Country: None (occurrence: None)
  Receive Date: 20111219
  Receipt Date: 20110713
  Transmission Date: 20120403
  Serious: No
  Sender: FDA-Public Use
  Company Number: US-ASTRAZENECA-2011SE42044

PATIENT
  Age: 52 Year
  Sex: Male
  Weight: 90.7 kg

DRUGS (2)
  1. THYROID MEDICATION [Concomitant]
     Route: 065
  2. CRESTOR [Suspect]
     Route: 048
     Dates: start: 20110611, end: 20110712

REACTIONS (4)
  - ORAL DISCOMFORT [None]
  - NIGHTMARE [None]
  - FEELING HOT [None]
  - TONGUE COATED [None]
